FAERS Safety Report 11679387 (Version 2)
Quarter: 2015Q4

REPORT INFORMATION
  Report Type: Spontaneous
  Country: US (occurrence: US)
  Receive Date: 20151027
  Receipt Date: 20151104
  Transmission Date: 20160304
  Serious: No
  Sender: FDA-Public Use
  Company Number: US-ELI_LILLY_AND_COMPANY-US201002004224

PATIENT
  Age: 61 Year
  Sex: Female

DRUGS (15)
  1. FORTEO [Suspect]
     Active Substance: TERIPARATIDE
     Indication: OSTEOPOROSIS
     Dosage: 20 UG, DAILY (1/D)
     Dates: start: 20100129, end: 20100209
  2. CALCITROL [Concomitant]
     Active Substance: CALCITRIOL
     Dosage: 0.25 UG, DAILY (1/D)
  3. POTASSIUM CHLORIDE. [Concomitant]
     Active Substance: POTASSIUM CHLORIDE
     Dosage: 1 D/F, 2/D
  4. FISH OIL [Concomitant]
     Active Substance: FISH OIL
     Dosage: 1 D/F, 2/D
  5. PRILOSEC [Concomitant]
     Active Substance: OMEPRAZOLE MAGNESIUM
  6. FORTEO [Suspect]
     Active Substance: TERIPARATIDE
     Dosage: 20 UG, DAILY (1/D)
     Dates: start: 20100309
  7. VITAMIN B6 [Concomitant]
     Active Substance: PYRIDOXINE HYDROCHLORIDE
     Dosage: 1 D/F, DAILY (1/D)
  8. TUMS [Concomitant]
     Active Substance: CALCIUM CARBONATE
     Dosage: 1 D/F, 3/D
  9. VITAMIN B-COMPLEX [Concomitant]
     Active Substance: DEXPANTHENOL\NIACINAMIDE\PYRIDOXINE HYDROCHLORIDE\RIBOFLAVIN 5^-PHOSPHATE SODIUM\THIAMINE HYDROCHLORIDE
     Dosage: UNK, DAILY (1/D)
  10. SLIPPERY ELM [Concomitant]
     Indication: FAECES HARD
  11. CENTRUM [Concomitant]
     Active Substance: VITAMINS
     Dosage: UNK, DAILY (1/D)
  12. FORTEO [Suspect]
     Active Substance: TERIPARATIDE
     Dosage: 20 UG, DAILY (1/D)
  13. AMILORIDE [Concomitant]
     Active Substance: AMILORIDE
     Dosage: 2 D/F, DAILY (1/D)
  14. VITAMIN E [Concomitant]
     Active Substance: .ALPHA.-TOCOPHEROL
     Dosage: 200 IU, DAILY (1/D)
  15. MAGNESIUM [Concomitant]
     Active Substance: MAGNESIUM
     Dosage: 1 D/F, 2/D

REACTIONS (12)
  - Abdominal pain [Not Recovered/Not Resolved]
  - Lichen planus [Recovering/Resolving]
  - Psoriasis [Recovering/Resolving]
  - Arthralgia [Unknown]
  - Anxiety [Unknown]
  - Rash [Recovering/Resolving]
  - Gastrointestinal motility disorder [Not Recovered/Not Resolved]
  - Infrequent bowel movements [Not Recovered/Not Resolved]
  - Feeling abnormal [Unknown]
  - Headache [Not Recovered/Not Resolved]
  - Fatigue [Unknown]
  - Muscle spasms [Not Recovered/Not Resolved]

NARRATIVE: CASE EVENT DATE: 201002
